FAERS Safety Report 7632767-3 (Version None)
Quarter: 2011Q3

REPORT INFORMATION
  Report Type: 
  Country: None (occurrence: None)
  Receive Date: 20110725
  Receipt Date: 20110105
  Transmission Date: 20111222
  Serious: No
  Sender: FDA-Public Use
  Company Number: US-BRISTOL-MYERS SQUIBB COMPANY-15471972

PATIENT
  Age: 55 Year
  Sex: Female
  Weight: 109 kg

DRUGS (2)
  1. WARFARIN SODIUM [Suspect]
     Indication: PULMONARY EMBOLISM
  2. MICARDIS [Concomitant]

REACTIONS (2)
  - BLOOD BLISTER [None]
  - INTERNATIONAL NORMALISED RATIO FLUCTUATION [None]
